FAERS Safety Report 9422510 (Version 1)
Quarter: 2013Q3

REPORT INFORMATION
  Report Type: Report from Study
  Country: US (occurrence: US)
  Receive Date: 20130726
  Receipt Date: 20130726
  Transmission Date: 20140515
  Serious: Yes (Hospitalization, Other)
  Sender: FDA-Public Use
  Company Number: US-PURDUE-USA-2013-0104884

PATIENT
  Age: 60 Year
  Sex: Male

DRUGS (1)
  1. OXYCONTIN (NDA 22-272) [Suspect]
     Indication: PRODUCT USED FOR UNKNOWN INDICATION
     Dosage: 80 MG, Q6H
     Route: 048

REACTIONS (7)
  - Prostatic operation [Unknown]
  - Retinal operation [Unknown]
  - Rheumatoid arthritis [Unknown]
  - Neuropathy peripheral [Unknown]
  - Hospitalisation [Unknown]
  - Pain [Unknown]
  - Malaise [Unknown]
